FAERS Safety Report 9835565 (Version 1)
Quarter: 2014Q1

REPORT INFORMATION
  Report Type: Spontaneous
  Country: IT (occurrence: IT)
  Receive Date: 20140122
  Receipt Date: 20140122
  Transmission Date: 20141002
  Serious: Yes (Other)
  Sender: FDA-Public Use
  Company Number: IT-ACTAVIS-2014-00335

PATIENT
  Age: 41 Year
  Sex: Male

DRUGS (1)
  1. TRAMADOL (UNKNOWN) [Suspect]
     Indication: HEADACHE
     Dosage: 30 DROPS/TOTAL
     Route: 048
     Dates: start: 20131006, end: 20131006

REACTIONS (3)
  - Hypotension [Recovering/Resolving]
  - Malaise [Recovering/Resolving]
  - Retching [Recovering/Resolving]
